FAERS Safety Report 5141099-7 (Version None)
Quarter: 2006Q4

REPORT INFORMATION
  Report Type: 
  Country: None (occurrence: None)
  Receive Date: 20061101
  Receipt Date: 20061025
  Transmission Date: 20070319
  Serious: Yes (Other)
  Sender: FDA-Public Use
  Company Number: DE-ELI_LILLY_AND_COMPANY-DE200610004873

PATIENT
  Age: 73 Year
  Sex: Female

DRUGS (5)
  1. ZYPREXA [Suspect]
     Indication: MANIA
     Dosage: 15 MG, DAILY (1/D)
     Route: 048
     Dates: start: 20060901
  2. ZYPREXA [Suspect]
     Dosage: 20 MG, DAILY (1/D)
     Route: 048
     Dates: end: 20061001
  3. ZYPREXA [Suspect]
     Dosage: 30 MG, DAILY (1/D)
     Route: 048
     Dates: start: 20061001
  4. EUNERPAN [Concomitant]
     Dosage: 75 MG, UNK
  5. LEVODOPA [Concomitant]
     Dosage: 125 MG, 2/D

REACTIONS (4)
  - ANXIETY [None]
  - PERSONALITY CHANGE [None]
  - PRESCRIBED OVERDOSE [None]
  - SLEEP DISORDER [None]
